FAERS Safety Report 13913520 (Version 1)
Quarter: 2017Q3

REPORT INFORMATION
  Report Type: Spontaneous
  Country: US (occurrence: US)
  Receive Date: 20170828
  Receipt Date: 20170828
  Transmission Date: 20171127
  Serious: No
  Sender: FDA-Public Use
  Company Number: US-ROCHE-1132843

PATIENT
  Sex: Male

DRUGS (5)
  1. NUTROPIN [Suspect]
     Active Substance: SOMATROPIN
     Dosage: 0.32 CC
     Route: 058
     Dates: start: 20000316
  2. NUTROPIN [Suspect]
     Active Substance: SOMATROPIN
     Dosage: 0.36 CC
     Route: 058
     Dates: start: 20000915
  3. NUTROPIN [Suspect]
     Active Substance: SOMATROPIN
     Dosage: 0.34 CC
     Route: 058
     Dates: start: 20000628
  4. NUTROPIN [Suspect]
     Active Substance: SOMATROPIN
     Indication: BODY HEIGHT BELOW NORMAL
     Dosage: 0.24 CC
     Route: 058
  5. RITALIN [Concomitant]
     Active Substance: METHYLPHENIDATE HYDROCHLORIDE

REACTIONS (3)
  - Drug dose omission [Unknown]
  - Headache [Unknown]
  - Joint crepitation [Unknown]
